FAERS Safety Report 10152177 (Version 3)
Quarter: 2014Q2

REPORT INFORMATION
  Report Type: Spontaneous
  Country: US (occurrence: US)
  Receive Date: 20140505
  Receipt Date: 20140507
  Transmission Date: 20141212
  Serious: Yes (Other)
  Sender: FDA-Public Use
  Company Number: US-ROCHE-1380301

PATIENT
  Age: 83 Year
  Sex: Female

DRUGS (10)
  1. XELODA [Suspect]
     Indication: COLON CANCER
     Dosage: FOR SEVEN DAYS, OFF SEVEN DAYS
     Route: 048
     Dates: start: 20140204, end: 20140429
  2. DIAZEPAM [Suspect]
     Indication: PRODUCT USED FOR UNKNOWN INDICATION
     Route: 065
  3. DIOVAN [Concomitant]
  4. OMEPRAZOLE [Concomitant]
  5. ATENOLOL [Concomitant]
  6. SIMVASTATIN [Concomitant]
  7. CLOPIDOGREL [Concomitant]
  8. TRIAZOLAM [Concomitant]
  9. ALPRAZOLAM [Concomitant]
  10. CATAPRES [Concomitant]

REACTIONS (3)
  - Blood pressure increased [Unknown]
  - Dizziness [Recovering/Resolving]
  - Palmar-plantar erythrodysaesthesia syndrome [Recovering/Resolving]
